FAERS Safety Report 6503095-4 (Version None)
Quarter: 2009Q4

REPORT INFORMATION
  Report Type: 
  Country: None (occurrence: None)
  Receive Date: 20091217
  Receipt Date: 20091208
  Transmission Date: 20100525
  Serious: Yes (Other)
  Sender: FDA-Public Use
  Company Number: PHHY2009CA54973

PATIENT

DRUGS (1)
  1. ALISKIREN ALI+ [Suspect]

REACTIONS (1)
  - URINE ALBUMIN/CREATININE RATIO INCREASED [None]
